FAERS Safety Report 23920230 (Version 2)
Quarter: 2024Q2

REPORT INFORMATION
  Report Type: Report from Study
  Country: CA (occurrence: CA)
  Receive Date: 20240530
  Receipt Date: 20240614
  Transmission Date: 20240716
  Serious: Yes (Other)
  Sender: FDA-Public Use
  Company Number: CA-002147023-NVSC2022CA009121

PATIENT
  Age: 28 Year
  Sex: Female

DRUGS (1)
  1. HYRIMOZ [Suspect]
     Active Substance: ADALIMUMAB-ADAZ
     Indication: Ankylosing spondylitis
     Dosage: 40 MG, Q2W  (FORMULATION: PRE-FILLED PEN)
     Route: 058
     Dates: start: 20210831, end: 202311

REACTIONS (7)
  - Fatigue [Unknown]
  - Myalgia [Unknown]
  - Migraine [Unknown]
  - Nausea [Unknown]
  - Injection site pain [Unknown]
  - General physical health deterioration [Unknown]
  - Therapy cessation [Unknown]

NARRATIVE: CASE EVENT DATE: 20231101
